FAERS Safety Report 16857258 (Version 1)
Quarter: 2019Q3

REPORT INFORMATION
  Report Type: Report from Study
  Country: None (occurrence: IL)
  Receive Date: 20190926
  Receipt Date: 20190926
  Transmission Date: 20191005
  Serious: Yes (Hospitalization)
  Sender: FDA-Public Use
  Company Number: IL-ABBVIE-19K-082-2936159-00

PATIENT
  Sex: Male

DRUGS (1)
  1. DUODOPA [Suspect]
     Active Substance: CARBIDOPA\LEVODOPA
     Indication: PARKINSON^S DISEASE
     Dosage: MORNING DOSE- 19 ML, CONTINUOUS RATE- 4.3 ML/ HOUR, NIGHT DOSE- 2.3 ML,EXTRA DOSE- 1.5 ML
     Route: 050
     Dates: start: 20180528

REACTIONS (4)
  - General physical health deterioration [Unknown]
  - Hypophagia [Unknown]
  - Underweight [Unknown]
  - Pneumonia [Unknown]

NARRATIVE: CASE EVENT DATE: 201909
